FAERS Safety Report 7584873-X (Version None)
Quarter: 2011Q2

REPORT INFORMATION
  Report Type: 
  Country: None (occurrence: None)
  Receive Date: 20110630
  Receipt Date: 20110628
  Transmission Date: 20111010
  Serious: Yes (Death)
  Sender: FDA-Public Use
  Company Number: PHHY2011US57547

PATIENT
  Sex: Male

DRUGS (16)
  1. ATIVAN [Concomitant]
  2. FORTEO [Concomitant]
  3. LEVOTHYROXINE SODIUM [Concomitant]
  4. DRISDOL [Concomitant]
  5. FOLIC ACID [Concomitant]
  6. ADVAIR DISKUS 100/50 [Concomitant]
  7. HYDROCORTISONE [Concomitant]
  8. DEXAMETHASONE [Concomitant]
  9. SELAX [Concomitant]
  10. CALCIUM CARBONATE [Concomitant]
  11. KLOR-CON [Concomitant]
  12. HYDROCODONE [Concomitant]
  13. LASIX [Concomitant]
  14. EXJADE [Suspect]
     Dosage: UNK
     Dates: start: 20060301
  15. TESTOSTERONE [Concomitant]
  16. SINGULAIR [Concomitant]

REACTIONS (1)
  - DEATH [None]
